FAERS Safety Report 7415929-X (Version None)
Quarter: 2011Q2

REPORT INFORMATION
  Report Type: 
  Country: None (occurrence: None)
  Receive Date: 20110406
  Receipt Date: 20110323
  Transmission Date: 20111010
  Serious: Yes (Hospitalization)
  Sender: FDA-Public Use
  Company Number: DSJ-2011-06039

PATIENT
  Age: 81 Year
  Sex: Female

DRUGS (6)
  1. BENICAR [Suspect]
     Indication: HYPERTENSION
     Dosage: 20 MG (20 MG,1 IN 1 D), ORAL
     Route: 048
     Dates: start: 20080301, end: 20110101
  2. ASPIRIN [Suspect]
     Indication: PRODUCT USED FOR UNKNOWN INDICATION
     Dosage: 100 MG, PER ORAL
     Route: 048
     Dates: start: 20080301, end: 20110101
  3. HYDRALAZINE (HYDRALAZINE) (HYDRALAZINE) [Suspect]
     Indication: HYPERTENSION
     Dosage: 50 MG, PER ORAL
     Route: 048
     Dates: start: 20080301, end: 20110101
  4. AMLODIPINE [Suspect]
     Indication: HYPERTENSION
     Dosage: 5 MG, PER ORAL
     Route: 048
     Dates: start: 20080301, end: 20110101
  5. AMILORIDE HCL AND HYDROCHLOROTHIAZIDE [Suspect]
     Indication: HYPERTENSION
     Dosage: 50/5 MG, PER ORAL
     Route: 048
     Dates: start: 20080301
  6. OMEPRAZOLE [Concomitant]

REACTIONS (3)
  - HYPOTENSION [None]
  - GASTROINTESTINAL HAEMORRHAGE [None]
  - ANAEMIA [None]
